FAERS Safety Report 10552649 (Version 1)
Quarter: 2014Q4

REPORT INFORMATION
  Report Type: Spontaneous
  Country: US (occurrence: US)
  Receive Date: 20141029
  Receipt Date: 20141029
  Transmission Date: 20150529
  Serious: No
  Sender: FDA-Public Use
  Company Number: US-MYLANLABS-2014S1013214

PATIENT
  Sex: Female
  Weight: 56.25 kg

DRUGS (2)
  1. MIDODRINE [Suspect]
     Active Substance: MIDODRINE
     Indication: HYPOTENSION
     Dosage: 5 MG,TID
     Route: 048
     Dates: start: 2002, end: 2004
  2. CHEMOTHERAPEUTICS [Suspect]
     Active Substance: UNSPECIFIED INGREDIENT
     Indication: NEOPLASM MALIGNANT
     Dosage: UNK
     Dates: start: 2002, end: 2004

REACTIONS (2)
  - Varicose vein [Not Recovered/Not Resolved]
  - Flushing [Not Recovered/Not Resolved]
